FAERS Safety Report 5838745-9 (Version None)
Quarter: 2008Q3

REPORT INFORMATION
  Report Type: 
  Country: None (occurrence: None)
  Receive Date: 20080808
  Receipt Date: 20080724
  Transmission Date: 20090109
  Serious: Yes (Other)
  Sender: FDA-Public Use
  Company Number: FR-JNJFOC-20080705631

PATIENT
  Age: 64 Year
  Sex: Male

DRUGS (14)
  1. RISPERDAL [Suspect]
     Indication: DRUG USE FOR UNKNOWN INDICATION
     Route: 065
  2. DEPAKENE [Interacting]
     Route: 048
  3. DEPAKENE [Interacting]
     Route: 048
  4. DEPAKENE [Interacting]
     Indication: CONVULSION
     Route: 048
  5. DAFALGAN [Interacting]
     Indication: DRUG USE FOR UNKNOWN INDICATION
     Route: 065
  6. FOSAMAX [Interacting]
     Indication: DRUG USE FOR UNKNOWN INDICATION
     Route: 065
  7. TIAPRIDAL [Interacting]
     Indication: DRUG USE FOR UNKNOWN INDICATION
     Route: 065
  8. RIVOTRIL [Interacting]
     Indication: DRUG USE FOR UNKNOWN INDICATION
     Route: 065
  9. EQUANIL [Interacting]
     Indication: DRUG USE FOR UNKNOWN INDICATION
     Route: 065
  10. ANDROCUR [Interacting]
     Indication: DRUG USE FOR UNKNOWN INDICATION
     Route: 065
  11. TRANSIPEG [Concomitant]
     Indication: DRUG USE FOR UNKNOWN INDICATION
     Route: 065
  12. FOLIC ACID [Concomitant]
     Route: 065
  13. ROCEPHIN [Concomitant]
     Route: 065
  14. PROFENID [Concomitant]
     Route: 065

REACTIONS (3)
  - CONVULSION [None]
  - DRUG INEFFECTIVE [None]
  - DRUG INTERACTION [None]
